FAERS Safety Report 9915984 (Version 1)
Quarter: 2014Q1

REPORT INFORMATION
  Report Type: Spontaneous
  Country: PK (occurrence: None)
  Receive Date: 20140219
  Receipt Date: 20140219
  Transmission Date: 20141002
  Serious: Yes (Other)
  Sender: FDA-Public Use
  Company Number: KAD201402-000194

PATIENT
  Sex: Male

DRUGS (5)
  1. RIBAVIRIN (RIBAVIRIN) [Suspect]
     Indication: HEPATITIS C
  2. INTERFERON ALFACON-1(INTERFERON ALFACON-1) [Suspect]
     Indication: HEPATITIS C
  3. PREDNISOLONE (PREDNISOLONE) [Suspect]
     Indication: IMMUNOSUPPRESSANT DRUG THERAPY
  4. AZATHIOPRINE (AZATHIOPRINE) [Suspect]
     Indication: IMMUNOSUPPRESSANT DRUG THERAPY
  5. CYCLOSPORINE [Suspect]
     Indication: IMMUNOSUPPRESSANT DRUG THERAPY

REACTIONS (4)
  - Pancytopenia [None]
  - Haemodialysis [None]
  - Therapeutic response decreased [None]
  - Transplant rejection [None]
